FAERS Safety Report 5887069-2 (Version None)
Quarter: 2008Q3

REPORT INFORMATION
  Report Type: 
  Country: None (occurrence: None)
  Receive Date: 20080917
  Receipt Date: 20080902
  Transmission Date: 20090109
  Serious: Yes (Other)
  Sender: FDA-Public Use
  Company Number: JP-GENENTECH-267692

PATIENT
  Age: 67 Year
  Sex: Female

DRUGS (4)
  1. AVASTIN [Suspect]
     Indication: RECTAL CANCER
     Dosage: 5 MG/KG, Q2W
     Route: 041
     Dates: start: 20080901
  2. FLUOROURACIL [Suspect]
     Indication: RECTAL CANCER
  3. ELPLAT [Suspect]
     Indication: RECTAL CANCER
     Route: 041
  4. LEUCOVORIN CALCIUM [Suspect]
     Indication: RECTAL CANCER
     Route: 041

REACTIONS (1)
  - ANAPHYLACTIC SHOCK [None]
